FAERS Safety Report 11884414 (Version 2)
Quarter: 2016Q1

REPORT INFORMATION
  Report Type: Report from Study
  Country: BR (occurrence: BR)
  Receive Date: 20160103
  Receipt Date: 20160111
  Transmission Date: 20160526
  Serious: Yes (Other)
  Sender: FDA-Public Use
  Company Number: BR-ROCHE-1465724

PATIENT
  Age: 53 Year
  Sex: Female
  Weight: 87 kg

DRUGS (11)
  1. BOLDO LEAF [Concomitant]
     Active Substance: PEUMUS BOLDUS LEAF
  2. PLANTAGO MAJOR [Concomitant]
     Active Substance: PLANTAGO MAJOR
  3. REUQUINOL [Concomitant]
     Active Substance: HYDROXYCHLOROQUINE SULFATE
  4. PHENERGAN [Suspect]
     Active Substance: PROMETHAZINE HYDROCHLORIDE
     Indication: ANTIALLERGIC THERAPY
     Route: 065
  5. ESCITALOPRAM [Concomitant]
     Active Substance: ESCITALOPRAM OXALATE
  6. OLMETEC [Concomitant]
     Active Substance: OLMESARTAN MEDOXOMIL
  7. TYLENOL [Concomitant]
     Active Substance: ACETAMINOPHEN
  8. MULUNGU [Concomitant]
  9. VELIJA [Concomitant]
     Active Substance: DULOXETINE HYDROCHLORIDE
  10. MABTHERA [Suspect]
     Active Substance: RITUXIMAB
     Indication: RHEUMATOID ARTHRITIS
     Dosage: LAST INFUSION: 23-DEC-2015
     Route: 042
     Dates: start: 20130301
  11. CITALOPRAM [Concomitant]
     Active Substance: CITALOPRAM HYDROBROMIDE

REACTIONS (10)
  - Swelling [Recovering/Resolving]
  - Somnolence [Recovered/Resolved]
  - Eye irritation [Unknown]
  - General physical health deterioration [Recovered/Resolved]
  - Muscular weakness [Recovered/Resolved]
  - Arthralgia [Recovering/Resolving]
  - Asthenia [Recovered/Resolved]
  - Unevaluable event [Recovered/Resolved]
  - Headache [Unknown]
  - Ill-defined disorder [Not Recovered/Not Resolved]

NARRATIVE: CASE EVENT DATE: 20151224
